FAERS Safety Report 17708234 (Version 1)
Quarter: 2020Q2

REPORT INFORMATION
  Report Type: Spontaneous
  Country: CN (occurrence: CN)
  Receive Date: 20200425
  Receipt Date: 20200425
  Transmission Date: 20200714
  Serious: No
  Sender: FDA-Public Use
  Company Number: CN-B.BRAUN MEDICAL INC.-2083127

PATIENT
  Age: 25 Year
  Sex: Male
  Weight: 65 kg

DRUGS (6)
  1. ETOMIDATE. [Suspect]
     Active Substance: ETOMIDATE
     Route: 042
     Dates: start: 20200313, end: 20200313
  2. CEFUROXIME. [Suspect]
     Active Substance: CEFUROXIME
     Route: 041
     Dates: start: 20200313, end: 20200313
  3. MIDAZOLAM. [Suspect]
     Active Substance: MIDAZOLAM
     Route: 030
     Dates: start: 20200313, end: 20200313
  4. HESPAN [Suspect]
     Active Substance: HETASTARCH\SODIUM CHLORIDE
     Indication: BLOOD VOLUME EXPANSION
     Route: 041
     Dates: start: 20200313, end: 20200313
  5. ROCURONIUM [Suspect]
     Active Substance: ROCURONIUM BROMIDE
     Route: 042
     Dates: start: 20200313, end: 20200313
  6. SUFENTANIL CITRATE. [Suspect]
     Active Substance: SUFENTANIL CITRATE
     Route: 042
     Dates: start: 20200313, end: 20200313

REACTIONS (1)
  - Anaphylactic shock [Recovering/Resolving]

NARRATIVE: CASE EVENT DATE: 20200313
